FAERS Safety Report 11363374 (Version 2)
Quarter: 2017Q3

REPORT INFORMATION
  Report Type: Spontaneous
  Country: US (occurrence: US)
  Receive Date: 20150811
  Receipt Date: 20170710
  Transmission Date: 20171127
  Serious: No
  Sender: FDA-Public Use
  Company Number: US-ASTRAZENECA-2015SE74781

PATIENT
  Age: 21559 Day
  Sex: Female
  Weight: 83.5 kg

DRUGS (7)
  1. SINGULAIR [Concomitant]
     Active Substance: MONTELUKAST SODIUM
  2. NEURONTIN [Concomitant]
     Active Substance: GABAPENTIN
     Dates: start: 201612
  3. FARXIGA [Suspect]
     Active Substance: DAPAGLIFLOZIN PROPANEDIOL
     Indication: DIABETES MELLITUS
     Route: 048
     Dates: start: 201605, end: 201705
  4. TRILEPTAL [Concomitant]
     Active Substance: OXCARBAZEPINE
     Dates: start: 2016
  5. JANUVIA [Concomitant]
     Active Substance: SITAGLIPTIN PHOSPHATE
     Indication: TYPE 2 DIABETES MELLITUS
  6. BYDUREON [Suspect]
     Active Substance: EXENATIDE
     Indication: TYPE 2 DIABETES MELLITUS
     Route: 058
     Dates: start: 201505
  7. XANAX [Concomitant]
     Active Substance: ALPRAZOLAM
     Dosage: 1.0MG AS REQUIRED
     Dates: start: 2012

REACTIONS (15)
  - Injection site scar [Unknown]
  - Product quality issue [Unknown]
  - Drug ineffective [Unknown]
  - Contusion [Unknown]
  - Genital rash [Unknown]
  - Weight decreased [Unknown]
  - Injection site nodule [Unknown]
  - Genital tract inflammation [Unknown]
  - Glucose urine present [Unknown]
  - Injection site swelling [Unknown]
  - Genital swelling [Recovered/Resolved]
  - Pruritus genital [Unknown]
  - Injection site pruritus [Unknown]
  - Blood glucose increased [Unknown]
  - Injection site erythema [Unknown]

NARRATIVE: CASE EVENT DATE: 20150611
